FAERS Safety Report 7743801-4 (Version None)
Quarter: 2011Q3

REPORT INFORMATION
  Report Type: 
  Country: None (occurrence: None)
  Receive Date: 20110912
  Receipt Date: 20110902
  Transmission Date: 20111222
  Serious: Yes (Other)
  Sender: FDA-Public Use
  Company Number: US-GLAXOSMITHKLINE-A0886935A

PATIENT
  Age: 59 Year
  Sex: Female
  Weight: 140 kg

DRUGS (1)
  1. AVANDIA [Suspect]
     Indication: DIABETES MELLITUS
     Dates: start: 20020101, end: 20070601

REACTIONS (3)
  - CORONARY ARTERY DISEASE [None]
  - CARDIOMEGALY [None]
  - SILENT MYOCARDIAL INFARCTION [None]
